FAERS Safety Report 9018755 (Version 3)
Quarter: 2013Q1

REPORT INFORMATION
  Report Type: Spontaneous
  Country: US (occurrence: US)
  Receive Date: 20130118
  Receipt Date: 20130325
  Transmission Date: 20140127
  Serious: Yes (Other)
  Sender: FDA-Public Use
  Company Number: US-SANOFI-AVENTIS-2013SA001393

PATIENT
  Sex: Female

DRUGS (1)
  1. AUBAGIO [Suspect]
     Indication: MULTIPLE SCLEROSIS
     Route: 048
     Dates: start: 20121105, end: 201212

REACTIONS (7)
  - Loss of consciousness [Unknown]
  - Convulsion [Unknown]
  - Malaise [Unknown]
  - Hallucination, visual [Unknown]
  - Hallucination, auditory [Unknown]
  - Influenza [Unknown]
  - Diarrhoea [Unknown]
